FAERS Safety Report 4871712-0 (Version None)
Quarter: 2006Q1

REPORT INFORMATION
  Report Type: 
  Country: None (occurrence: None)
  Receive Date: 20060104
  Receipt Date: 20051227
  Transmission Date: 20060701
  Serious: Yes (Hospitalization)
  Sender: FDA-Public Use
  Company Number: 2005AP06622

PATIENT
  Age: 57 Year
  Sex: Male

DRUGS (7)
  1. DIPRIVAN [Suspect]
     Indication: SEDATION
     Dosage: 360 ML-432 ML  PER DAY
     Route: 042
     Dates: start: 20051120, end: 20051206
  2. KAKODIN [Concomitant]
     Route: 041
     Dates: start: 20051119, end: 20051208
  3. AMIKACIN SULFATE [Concomitant]
     Route: 041
     Dates: start: 20051120, end: 20051211
  4. VANCOMYCIN [Concomitant]
     Route: 041
     Dates: start: 20051120
  5. HUMULIN R [Concomitant]
     Route: 041
     Dates: start: 20051121, end: 20051208
  6. HEPARIN [Concomitant]
     Route: 041
     Dates: start: 20051122, end: 20051207
  7. VERAPAMIL [Concomitant]
     Route: 041
     Dates: start: 20051123, end: 20051211

REACTIONS (2)
  - DELAYED RECOVERY FROM ANAESTHESIA [None]
  - HEPATIC FUNCTION ABNORMAL [None]
